FAERS Safety Report 17822783 (Version 1)
Quarter: 2020Q2

REPORT INFORMATION
  Report Type: Spontaneous
  Country: LT (occurrence: LT)
  Receive Date: 20200526
  Receipt Date: 20200526
  Transmission Date: 20200714
  Serious: Yes (Other)
  Sender: FDA-Public Use
  Company Number: LT-TEVA-2020-LT-1239384

PATIENT
  Age: 69 Year
  Sex: Female

DRUGS (9)
  1. CLOTRIMAZOLE. [Concomitant]
     Active Substance: CLOTRIMAZOLE
     Indication: CRYPTOCOCCOSIS
     Dosage: 2 TIMES
     Route: 061
  2. MYCOPHENOLATE MOFETIL. [Suspect]
     Active Substance: MYCOPHENOLATE MOFETIL
     Indication: IMMUNOSUPPRESSANT DRUG THERAPY
     Dosage: 720 MILLIGRAM DAILY;
     Route: 065
  3. ITRACONAZOLE. [Suspect]
     Active Substance: ITRACONAZOLE
     Indication: CRYPTOCOCCOSIS
     Dosage: 200 MILLIGRAM DAILY; SYSTEMIC
     Route: 065
  4. FLUCONAZOLE. [Concomitant]
     Active Substance: FLUCONAZOLE
     Indication: CRYPTOCOCCOSIS
     Dosage: 200 MILLIGRAM DAILY; FOR 10 DAYS
     Route: 048
  5. METHYLPREDNISOLONE. [Suspect]
     Active Substance: METHYLPREDNISOLONE
     Indication: IMMUNOSUPPRESSANT DRUG THERAPY
     Dosage: 4 MILLIGRAM DAILY;
     Route: 065
  6. TACROLIMUS. [Suspect]
     Active Substance: TACROLIMUS
     Indication: IMMUNOSUPPRESSANT DRUG THERAPY
     Dosage: 2 MILLIGRAM DAILY; SYSTEMIC
     Route: 065
  7. KETOCONAZOLE. [Concomitant]
     Active Substance: KETOCONAZOLE
     Indication: CRYPTOCOCCOSIS
     Dosage: WASHING LIQUID 2-3 TIMES
     Route: 061
  8. FLUCONAZOLE. [Concomitant]
     Active Substance: FLUCONAZOLE
     Dosage: 150 MILLIGRAM DAILY; FOR 8 WEEKS
     Route: 048
  9. ISOCONAZOLE-DIFLUCORTOLONE [Concomitant]
     Indication: CRYPTOCOCCOSIS
     Dosage: 2 TIMES
     Route: 061

REACTIONS (6)
  - Cryptococcosis [Recovered/Resolved]
  - Gait disturbance [Unknown]
  - Swelling face [Unknown]
  - Muscular weakness [Unknown]
  - Fungal skin infection [Recovering/Resolving]
  - Haematoma [Unknown]
